FAERS Safety Report 8092063-X (Version None)
Quarter: 2012Q1

REPORT INFORMATION
  Report Type: 
  Country: None (occurrence: None)
  Receive Date: 20120129
  Receipt Date: 20111110
  Transmission Date: 20120608
  Serious: No
  Sender: FDA-Public Use
  Company Number: US-ABBOTT-11P-163-0873044-00

PATIENT
  Sex: Female
  Weight: 59.02 kg

DRUGS (6)
  1. FOLIC ACID [Concomitant]
     Indication: ANKYLOSING SPONDYLITIS
  2. HUMIRA [Suspect]
     Dates: start: 20111001
  3. SULFASALAZINE [Concomitant]
     Indication: ANKYLOSING SPONDYLITIS
  4. HUMIRA [Suspect]
     Indication: ANKYLOSING SPONDYLITIS
     Dates: start: 20090101, end: 20110701
  5. LISINOPRIL [Concomitant]
     Indication: HYPERTENSION
  6. ATENOLOL [Concomitant]
     Indication: HYPERTENSION

REACTIONS (6)
  - FALL [None]
  - IMPAIRED HEALING [None]
  - WOUND INFECTION [None]
  - WOUND COMPLICATION [None]
  - SKIN SWELLING [None]
  - WOUND [None]
